FAERS Safety Report 5224517-5 (Version None)
Quarter: 2007Q1

REPORT INFORMATION
  Report Type: 
  Country: None (occurrence: None)
  Receive Date: 20070130
  Receipt Date: 20070118
  Transmission Date: 20070707
  Serious: Yes (Hospitalization)
  Sender: FDA-Public Use
  Company Number: JP-PFIZER INC-2007005849

PATIENT
  Age: 76 Year
  Sex: Male
  Weight: 68.2 kg

DRUGS (9)
  1. ZYVOX [Suspect]
     Indication: DEVICE RELATED INFECTION
     Route: 048
     Dates: start: 20051227, end: 20060105
  2. ZYVOX [Suspect]
     Indication: DEVICE RELATED INFECTION
     Route: 048
     Dates: start: 20051227, end: 20060105
  3. ZANTAC [Concomitant]
     Indication: GASTRITIS
     Route: 048
  4. MAGNESIUM OXIDE [Concomitant]
     Indication: CONSTIPATION
     Route: 048
     Dates: start: 20051203
  5. ASPIRIN [Concomitant]
     Route: 048
     Dates: start: 20050115
  6. ARTIST [Concomitant]
     Indication: CARDIAC FAILURE
     Route: 048
     Dates: start: 20051215
  7. WARFARIN SODIUM [Concomitant]
     Route: 048
     Dates: start: 20051203
  8. SELBEX [Concomitant]
     Indication: GASTRITIS
     Route: 048
     Dates: start: 20051203, end: 20051215
  9. LASIX [Concomitant]
     Indication: CARDIAC FAILURE
     Route: 048
     Dates: start: 20051203, end: 20051215

REACTIONS (2)
  - DEHYDRATION [None]
  - PANCYTOPENIA [None]
